FAERS Safety Report 10083714 (Version 1)
Quarter: 2014Q2

REPORT INFORMATION
  Report Type: Spontaneous
  Country: US (occurrence: US)
  Receive Date: 20140417
  Receipt Date: 20140417
  Transmission Date: 20141212
  Serious: Yes (Other)
  Sender: FDA-Public Use
  Company Number: US-PFIZER INC-2014107023

PATIENT
  Age: 62 Year
  Sex: Female
  Weight: 68 kg

DRUGS (3)
  1. GENOTROPIN [Suspect]
     Indication: HYPOTHALAMO-PITUITARY DISORDER
     Dosage: 0.8 MG, DAILY
     Dates: start: 2006
  2. FLEXERIL [Concomitant]
     Dosage: UNK
  3. METRONIDAZOLE [Concomitant]
     Dosage: UNK

REACTIONS (2)
  - Road traffic accident [Unknown]
  - Feeling abnormal [Unknown]
